FAERS Safety Report 8924572 (Version 1)
Quarter: 2012Q4

REPORT INFORMATION
  Report Type: 
  Country: HU (occurrence: HU)
  Receive Date: 20121126
  Receipt Date: 20121126
  Transmission Date: 20130627
  Serious: Yes (Other)
  Sender: FDA-Public Use
  Company Number: HU-UCBSA-071321

PATIENT
  Age: 74 Year
  Sex: Male
  Weight: 86 kg

DRUGS (7)
  1. NEUPRO [Suspect]
     Indication: PARKINSON^S DISEASE
     Route: 062
     Dates: start: 20121026, end: 20121113
  2. NEUPRO [Suspect]
     Indication: PARKINSON^S DISEASE
     Dosage: 2 MG
     Route: 062
     Dates: start: 201210, end: 201210
  3. AMLODIPINE [Concomitant]
     Indication: MYOCARDIAL ISCHAEMIA
     Route: 048
  4. DOXASOSINE [Concomitant]
     Indication: HYPERTENSION
     Route: 048
  5. FUROSEMIDE [Concomitant]
     Indication: MYOCARDIAL ISCHAEMIA
     Route: 048
  6. ASPIRIN PROTECT [Concomitant]
     Indication: MYOCARDIAL ISCHAEMIA
     Route: 048
  7. INSULIN [Concomitant]
     Indication: DIABETES MELLITUS

REACTIONS (2)
  - Generalised oedema [Recovered/Resolved]
  - Dyspnoea [Recovered/Resolved]
